FAERS Safety Report 8977151 (Version 1)
Quarter: 2012Q4

REPORT INFORMATION
  Report Type: 
  Country: BR (occurrence: BR)
  Receive Date: 20121219
  Receipt Date: 20121219
  Transmission Date: 20130627
  Serious: Yes (Other)
  Sender: FDA-Public Use
  Company Number: BR-TEVA-376081ISR

PATIENT
  Age: 35 Year
  Sex: Female

DRUGS (2)
  1. TRISENOX [Suspect]
     Indication: ACUTE PROMYELOCYTIC LEUKAEMIA
     Dosage: at higher than recommended dose at 10mg  per day
  2. TRISENOX [Suspect]
     Dosage: resumed, after stopping for 4 days

REACTIONS (1)
  - Leukopenia [Recovered/Resolved]
